FAERS Safety Report 8956591 (Version 2)
Quarter: 2012Q4

REPORT INFORMATION
  Report Type: 
  Country: DE (occurrence: DE)
  Receive Date: 20121210
  Receipt Date: 20121220
  Transmission Date: 20130627
  Serious: Yes (Other)
  Sender: FDA-Public Use
  Company Number: DE-JNJFOC-20121200121

PATIENT
  Age: 46 Year
  Sex: Male
  Weight: 85 kg

DRUGS (3)
  1. REMICADE [Suspect]
     Indication: PSORIATIC ARTHROPATHY
     Route: 042
     Dates: start: 200306
  2. MTX [Concomitant]
     Dosage: drug start date: approx. 2007)
     Route: 065
     Dates: start: 2007, end: 201208
  3. FOLSAN [Concomitant]
     Dosage: drug dates: from approx. 2007 to approx. AUG-2012
     Route: 065
     Dates: start: 2007, end: 2012

REACTIONS (9)
  - Retinal vascular thrombosis [Unknown]
  - Osteoporosis [Unknown]
  - Depression [Unknown]
  - Macular degeneration [Unknown]
  - Unevaluable event [Recovering/Resolving]
  - Hypertension [Unknown]
  - Rash [Recovering/Resolving]
  - Abdominal discomfort [Recovering/Resolving]
  - Diarrhoea [Recovering/Resolving]
